FAERS Safety Report 9842865 (Version 3)
Quarter: 2014Q1

REPORT INFORMATION
  Report Type: Spontaneous
  Country: US (occurrence: US)
  Receive Date: 20140124
  Receipt Date: 20140306
  Transmission Date: 20141002
  Serious: No
  Sender: FDA-Public Use
  Company Number: US-PFIZER INC-2014021323

PATIENT
  Sex: Female
  Weight: 61.22 kg

DRUGS (2)
  1. CELEBREX [Suspect]
     Indication: OSTEOARTHRITIS
     Dosage: 200 MG, 2X/DAY
     Dates: end: 201401
  2. CLARITIN [Concomitant]
     Indication: ASTHMA
     Dosage: 10 MG, 2X/DAY

REACTIONS (9)
  - Aphthous stomatitis [Recovered/Resolved]
  - Pain [Unknown]
  - Skin erosion [Unknown]
  - Blister [Recovering/Resolving]
  - Musculoskeletal pain [Recovering/Resolving]
  - Skin lesion [Not Recovered/Not Resolved]
  - Scar [Not Recovered/Not Resolved]
  - Rash pustular [Not Recovered/Not Resolved]
  - Wound [Not Recovered/Not Resolved]
